FAERS Safety Report 17658829 (Version 3)
Quarter: 2020Q2

REPORT INFORMATION
  Report Type: Report from Study
  Country: None (occurrence: US)
  Receive Date: 20200413
  Receipt Date: 20200522
  Transmission Date: 20200713
  Serious: Yes (Other)
  Sender: FDA-Public Use
  Company Number: US-ABBVIE-20P-163-3359834-00

PATIENT
  Age: 57 Year
  Sex: Male
  Weight: 152.09 kg

DRUGS (2)
  1. IMBRUVICA [Suspect]
     Active Substance: IBRUTINIB
     Route: 048
     Dates: start: 201702, end: 20200402
  2. IMBRUVICA [Suspect]
     Active Substance: IBRUTINIB
     Indication: CHRONIC LYMPHOCYTIC LEUKAEMIA
     Route: 048
     Dates: start: 20180417

REACTIONS (2)
  - Necrosis [Recovering/Resolving]
  - Cutaneous T-cell lymphoma [Recovering/Resolving]

NARRATIVE: CASE EVENT DATE: 202003
